FAERS Safety Report 17687606 (Version 1)
Quarter: 2020Q2

REPORT INFORMATION
  Report Type: Report from Study
  Country: US (occurrence: US)
  Receive Date: 20200421
  Receipt Date: 20200421
  Transmission Date: 20200714
  Serious: Yes (Other)
  Sender: FDA-Public Use
  Company Number: US-EMD SERONO-9158337

PATIENT
  Sex: Female

DRUGS (1)
  1. REBIF [Suspect]
     Active Substance: INTERFERON BETA-1A
     Indication: PRODUCT USED FOR UNKNOWN INDICATION
     Dosage: REBIDOSE
     Route: 058
     Dates: start: 20180220

REACTIONS (5)
  - Eye haemorrhage [Unknown]
  - Muscle spasms [Unknown]
  - Pain [Unknown]
  - Dyspepsia [Unknown]
  - Injection site erythema [Unknown]
